FAERS Safety Report 12454919 (Version 1)
Quarter: 2016Q2

REPORT INFORMATION
  Report Type: Spontaneous
  Country: US (occurrence: US)
  Receive Date: 20160610
  Receipt Date: 20160610
  Transmission Date: 20160815
  Serious: No
  Sender: FDA-Public Use
  Company Number: US-PFIZER INC-2016272194

PATIENT
  Age: 66 Year
  Sex: Male

DRUGS (1)
  1. SUTENT [Suspect]
     Active Substance: SUNITINIB MALATE
     Indication: NEOPLASM MALIGNANT
     Dosage: 50 MG, TAKE 1 CAPSULE BY MOUTH EVERY DAY FOR 4 WEEKS FOLLOWED BY 2 WEEKS OF REST
     Route: 048
     Dates: start: 201605

REACTIONS (5)
  - Pain [Unknown]
  - Diarrhoea [Recovered/Resolved]
  - Oropharyngeal pain [Unknown]
  - Abdominal discomfort [Unknown]
  - Influenza [Unknown]
